FAERS Safety Report 12113595 (Version 1)
Quarter: 2016Q1

REPORT INFORMATION
  Report Type: Spontaneous
  Country: US (occurrence: None)
  Receive Date: 20160224
  Receipt Date: 20160224
  Transmission Date: 20160526
  Serious: Yes (Other)
  Sender: FDA-Public Use
  Company Number: None

PATIENT
  Sex: Female
  Weight: 62 kg

DRUGS (1)
  1. GENERIC OXCARBAZEPINE [Suspect]
     Active Substance: OXCARBAZEPINE

REACTIONS (1)
  - Product formulation issue [None]
